FAERS Safety Report 9889732 (Version 2)
Quarter: 2014Q1

REPORT INFORMATION
  Report Type: Report from Study
  Country: US (occurrence: US)
  Receive Date: 20140211
  Receipt Date: 20140318
  Transmission Date: 20141002
  Serious: Yes (Other)
  Sender: FDA-Public Use
  Company Number: US-ABBVIE-14P-163-1197176-00

PATIENT
  Age: 77 Year
  Sex: Female
  Weight: 71.28 kg

DRUGS (13)
  1. HUMIRA [Suspect]
     Indication: RHEUMATOID ARTHRITIS
     Dates: start: 20130131
  2. HYDROXYCHLOROQUINE [Concomitant]
     Indication: RHEUMATOID ARTHRITIS
  3. LISINOPRIL [Concomitant]
     Indication: HYPERTENSION
  4. SIMVASTATIN [Concomitant]
     Indication: BLOOD CHOLESTEROL INCREASED
  5. VITAMIN D [Concomitant]
     Indication: VITAMIN SUPPLEMENTATION
  6. PANTOPRAZOLE [Concomitant]
     Indication: GASTROOESOPHAGEAL REFLUX DISEASE
  7. VITAMIN C [Concomitant]
     Indication: VITAMIN SUPPLEMENTATION
  8. OCUVITE [Concomitant]
     Indication: VITAMIN SUPPLEMENTATION
  9. CENTRUM SILVER [Concomitant]
     Indication: VITAMIN SUPPLEMENTATION
  10. FLOVENT [Concomitant]
     Indication: INTERSTITIAL LUNG DISEASE
  11. ALBUTEROL [Concomitant]
     Indication: INTERSTITIAL LUNG DISEASE
  12. ALENDRONATE [Concomitant]
     Indication: OSTEOPOROSIS
  13. HEM-B-GONE [Concomitant]
     Indication: HAEMORRHOIDS

REACTIONS (8)
  - Skin lesion [Recovered/Resolved]
  - Impaired healing [Recovered/Resolved]
  - Squamous cell carcinoma [Recovered/Resolved]
  - Wound complication [Recovered/Resolved]
  - Wound complication [Recovered/Resolved]
  - Eczema [Recovered/Resolved]
  - Rotator cuff syndrome [Not Recovered/Not Resolved]
  - Musculoskeletal pain [Recovering/Resolving]
